FAERS Safety Report 9439321 (Version 1)
Quarter: 2013Q3

REPORT INFORMATION
  Report Type: Spontaneous
  Country: US (occurrence: US)
  Receive Date: 20130804
  Receipt Date: 20130804
  Transmission Date: 20140515
  Serious: No
  Sender: FDA-Public Use
  Company Number: US-009507513-1307USA006663

PATIENT
  Sex: Female

DRUGS (6)
  1. SAPHRIS [Suspect]
     Dosage: 10 MG LAST NIGHT
  2. SAPHRIS [Suspect]
     Dosage: 7 MG
  3. CONCERTA [Concomitant]
     Dosage: 36 MG
  4. DESVENLAFAXINE SUCCINATE [Concomitant]
     Dosage: 50 MG
  5. OXCARBAZEPINE [Concomitant]
     Dosage: 900 MG
  6. TOPAMAX [Concomitant]
     Dosage: 50 MG

REACTIONS (4)
  - Feeling abnormal [Unknown]
  - Abasia [Unknown]
  - Akathisia [Unknown]
  - Movement disorder [Unknown]
